FAERS Safety Report 6479975-5 (Version None)
Quarter: 2009Q4

REPORT INFORMATION
  Report Type: 
  Country: None (occurrence: None)
  Receive Date: 20091208
  Receipt Date: 20091127
  Transmission Date: 20100525
  Serious: Yes (Hospitalization)
  Sender: FDA-Public Use
  Company Number: FR-SANOFI-AVENTIS-2009SA004941

PATIENT
  Age: 69 Year
  Sex: Female

DRUGS (2)
  1. PLAQUENIL [Suspect]
     Indication: SARCOIDOSIS
     Route: 048
     Dates: end: 20090911
  2. METHOTREXATE BELLON [Suspect]
     Indication: SARCOIDOSIS
     Dates: end: 20090911

REACTIONS (2)
  - DIARRHOEA [None]
  - PYREXIA [None]
